FAERS Safety Report 24568986 (Version 2)
Quarter: 2024Q4

REPORT INFORMATION
  Report Type: Spontaneous
  Country: PL (occurrence: PL)
  Receive Date: 20241031
  Receipt Date: 20241121
  Transmission Date: 20250115
  Serious: Yes (Death)
  Sender: RECORDATI
  Company Number: PL-RECORDATI RARE DISEASE INC.-2024008359

PATIENT

DRUGS (1)
  1. ISTURISA [Suspect]
     Active Substance: OSILODROSTAT PHOSPHATE
     Indication: Product used for unknown indication
     Dosage: (5 MG)

REACTIONS (1)
  - Death [Fatal]
